FAERS Safety Report 23611795 (Version 1)
Quarter: 2024Q1

REPORT INFORMATION
  Report Type: Spontaneous
  Country: DE (occurrence: DE)
  Receive Date: 20240308
  Receipt Date: 20240308
  Transmission Date: 20240409
  Serious: Yes (Other)
  Sender: FDA-Public Use
  Company Number: DE-AMRYT PHARMACEUTICALS DAC-AEGR006898

PATIENT

DRUGS (5)
  1. METRELEPTIN [Suspect]
     Active Substance: METRELEPTIN
     Indication: Familial partial lipodystrophy
     Dosage: 5 MILLIGRAM, QD
     Route: 058
     Dates: end: 202101
  2. INSULIN NOS [Suspect]
     Active Substance: INSULIN NOS
     Indication: Product used for unknown indication
     Dosage: 60 INTERNATIONAL UNIT, QD
  3. INSULIN NOS [Suspect]
     Active Substance: INSULIN NOS
     Dosage: 40 INTERNATIONAL UNIT, QD
  4. INSULIN HUMAN NOS [Suspect]
     Active Substance: INSULIN HUMAN
     Indication: Product used for unknown indication
     Dosage: 60 INTERNATIONAL UNIT, QD
  5. INSULIN HUMAN NOS [Suspect]
     Active Substance: INSULIN HUMAN
     Dosage: 40 INTERNATIONAL UNIT, QD

REACTIONS (2)
  - Acute kidney injury [Unknown]
  - Hypoglycaemia [Recovered/Resolved]
